FAERS Safety Report 7815047-2 (Version None)
Quarter: 2011Q4

REPORT INFORMATION
  Report Type: 
  Country: None (occurrence: None)
  Receive Date: 20111014
  Receipt Date: 20111003
  Transmission Date: 20120403
  Serious: Yes (Other)
  Sender: FDA-Public Use
  Company Number: CA-JNJFOC-20111004495

PATIENT
  Sex: Male
  Weight: 76 kg

DRUGS (15)
  1. VENTOLIN [Concomitant]
  2. ATROVENT [Concomitant]
  3. APO-HYDROXYQUINE [Concomitant]
  4. REMICADE [Suspect]
     Indication: RHEUMATOID ARTHRITIS
     Route: 042
     Dates: start: 20100902
  5. ATENOLOL [Concomitant]
  6. HYDROCHLOROTHIAZIDE [Concomitant]
  7. LORAZEPAM [Concomitant]
  8. ADVAIR DISKUS 100/50 [Concomitant]
  9. SPIRIVA [Concomitant]
  10. REMICADE [Suspect]
     Route: 042
     Dates: start: 20110929
  11. SINGULAIR [Concomitant]
  12. VIAGRA [Concomitant]
  13. RAMIPRIL [Concomitant]
  14. OMEPRAZOLE [Concomitant]
  15. SIMVASTATIN [Concomitant]

REACTIONS (4)
  - STRESS [None]
  - ANXIETY [None]
  - BLOOD PRESSURE INCREASED [None]
  - WHEEZING [None]
